FAERS Safety Report 4898265-5 (Version None)
Quarter: 2006Q1

REPORT INFORMATION
  Report Type: 
  Country: None (occurrence: None)
  Receive Date: 20060201
  Receipt Date: 20051116
  Transmission Date: 20060701
  Serious: No
  Sender: FDA-Public Use
  Company Number: JP-MERCK-0511USA03410

PATIENT
  Age: 61 Year
  Sex: Male

DRUGS (8)
  1. PRINIVIL [Suspect]
     Indication: GLOMERULONEPHRITIS CHRONIC
     Route: 048
  2. MEDICON [Suspect]
     Indication: PHARYNGITIS
     Route: 048
     Dates: start: 20051114, end: 20051114
  3. DYPHYLLINE [Concomitant]
     Indication: PHARYNGITIS
     Route: 048
     Dates: start: 20051114, end: 20051114
  4. CRAVIT [Suspect]
     Indication: PHARYNGITIS
     Route: 048
     Dates: start: 20051114, end: 20051114
  5. PERSANTIN [Concomitant]
     Indication: GLOMERULONEPHRITIS CHRONIC
     Route: 048
  6. FENTANYL [Concomitant]
     Route: 065
  7. CHLORPHENIRAMINE MALEATE [Concomitant]
     Indication: PHARYNGITIS
     Route: 048
     Dates: start: 20051114, end: 20051114
  8. ZYLORIC [Concomitant]
     Indication: GLOMERULONEPHRITIS CHRONIC
     Route: 048

REACTIONS (2)
  - DRUG INTERACTION [None]
  - HYPERSENSITIVITY [None]
